FAERS Safety Report 12954626 (Version 1)
Quarter: 2016Q4

REPORT INFORMATION
  Report Type: Spontaneous
  Country: US (occurrence: US)
  Receive Date: 20161117
  Receipt Date: 20161117
  Transmission Date: 20170207
  Serious: Yes (Disabling)
  Sender: FDA-Public Use
  Company Number: None

PATIENT
  Age: 61 Year
  Sex: Male
  Weight: 89.1 kg

DRUGS (5)
  1. FLONASE [Concomitant]
     Active Substance: FLUTICASONE PROPIONATE
  2. LASIX [Concomitant]
     Active Substance: FUROSEMIDE
  3. CAPECITABINE. [Concomitant]
     Active Substance: CAPECITABINE
  4. CAPECITABINE. [Suspect]
     Active Substance: CAPECITABINE
     Indication: COLON CANCER
     Dosage: ?          QUANTITY:120 TABLET(S);?
     Route: 048
  5. IBUPROFEIN [Concomitant]

REACTIONS (3)
  - Nervousness [None]
  - Mood altered [None]
  - Tremor [None]

NARRATIVE: CASE EVENT DATE: 20160705
